FAERS Safety Report 6262803-0 (Version None)
Quarter: 2009Q3

REPORT INFORMATION
  Report Type: 
  Country: None (occurrence: None)
  Receive Date: 20090709
  Receipt Date: 20090629
  Transmission Date: 20100115
  Serious: Yes (Death)
  Sender: FDA-Public Use
  Company Number: JP-MERCK-0907USA00833

PATIENT
  Age: 72 Year
  Sex: Male

DRUGS (6)
  1. PEPCID [Suspect]
     Route: 048
  2. GEFITINIB [Suspect]
     Indication: MALIGNANT ASCITES
     Route: 048
     Dates: start: 20070501
  3. PREDNISOLONE [Concomitant]
     Route: 065
  4. LOXOPROFEN SODIUM [Concomitant]
     Route: 065
  5. FENTANYL [Concomitant]
     Route: 065
  6. PROCHLORPERAZINE [Concomitant]
     Route: 065

REACTIONS (1)
  - INTERSTITIAL LUNG DISEASE [None]
